FAERS Safety Report 9604138 (Version 2)
Quarter: 2013Q4

REPORT INFORMATION
  Report Type: Report from Study
  Country: US (occurrence: US)
  Receive Date: 20131008
  Receipt Date: 20131008
  Transmission Date: 20140711
  Serious: Yes (Hospitalization)
  Sender: FDA-Public Use
  Company Number: US-ROCHE-1283173

PATIENT
  Age: 56 Year
  Sex: Female

DRUGS (3)
  1. LUCENTIS [Suspect]
     Indication: DIABETIC RETINOPATHY
     Dosage: RIGHT EYE
     Route: 065
     Dates: start: 20130228
  2. LUCENTIS [Suspect]
     Indication: MACULAR OEDEMA
     Route: 050
     Dates: start: 20130208
  3. LUCENTIS [Suspect]
     Indication: DIABETIC RETINAL OEDEMA

REACTIONS (3)
  - Foot operation [Unknown]
  - Visual acuity reduced [Not Recovered/Not Resolved]
  - Blood glucose increased [Unknown]
